FAERS Safety Report 7423250-9 (Version None)
Quarter: 2011Q2

REPORT INFORMATION
  Report Type: 
  Country: None (occurrence: None)
  Receive Date: 20110419
  Receipt Date: 20101213
  Transmission Date: 20111010
  Serious: Yes (Hospitalization, Other)
  Sender: FDA-Public Use
  Company Number: US-BAYER-201033631NA

PATIENT
  Age: 39 Year
  Sex: Female
  Weight: 68.182 kg

DRUGS (7)
  1. MOTRIN [Concomitant]
  2. YASMIN [Suspect]
     Dosage: UNK UNK, QD
     Route: 048
     Dates: start: 20061001, end: 20090101
  3. YAZ [Suspect]
     Route: 048
     Dates: start: 20061001, end: 20090101
  4. YAZ [Suspect]
     Indication: MENSTRUAL CYCLE MANAGEMENT
     Route: 048
     Dates: start: 20061001, end: 20090101
  5. PRILOSEC [Concomitant]
  6. ADVIL LIQUI-GELS [Concomitant]
  7. OMEPRAZOLE [Concomitant]

REACTIONS (4)
  - ABDOMINAL PAIN UPPER [None]
  - CHOLELITHIASIS [None]
  - DYSPEPSIA [None]
  - CHOLECYSTITIS CHRONIC [None]
